FAERS Safety Report 16389266 (Version 1)
Quarter: 2019Q2

REPORT INFORMATION
  Report Type: Spontaneous
  Country: US (occurrence: US)
  Receive Date: 20190604
  Receipt Date: 20190604
  Transmission Date: 20190711
  Serious: Yes (Disabling, Other)
  Sender: FDA-Public Use
  Company Number: US-PFIZER INC-2019230204

PATIENT
  Age: 49 Year
  Sex: Female
  Weight: 60.33 kg

DRUGS (1)
  1. PREMARIN [Suspect]
     Active Substance: ESTROGENS, CONJUGATED
     Indication: HYSTERECTOMY
     Dosage: 0.625 MG, DAILY(BURGUNDY TABLET BY MOUTH DAILY   )
     Route: 048

REACTIONS (5)
  - Tendon disorder [Recovering/Resolving]
  - Road traffic accident [Not Recovered/Not Resolved]
  - Multiple fractures [Recovering/Resolving]
  - Craniocerebral injury [Recovering/Resolving]
  - Thermal burn [Recovering/Resolving]

NARRATIVE: CASE EVENT DATE: 201806
